FAERS Safety Report 7357914-2 (Version None)
Quarter: 2011Q1

REPORT INFORMATION
  Report Type: 
  Country: None (occurrence: None)
  Receive Date: 20110317
  Receipt Date: 20110311
  Transmission Date: 20110831
  Serious: Yes (Other)
  Sender: FDA-Public Use
  Company Number: US-PFIZER INC-2011028513

PATIENT
  Sex: Male
  Weight: 91 kg

DRUGS (4)
  1. XALATAN [Suspect]
     Indication: GLAUCOMA
     Dosage: ONE DROP IN BOTH EYES
     Route: 047
     Dates: start: 20110105, end: 20110206
  2. HYDROCHLOROTHIAZIDE [Concomitant]
     Indication: BLOOD PRESSURE ABNORMAL
     Dosage: 25 MG, UNK
     Route: 048
  3. VICODIN [Concomitant]
     Dosage: 10MG/325MG
     Route: 048
  4. MELOXICAM [Concomitant]
     Indication: ARTHRITIS
     Dosage: 15 MG, UNK
     Route: 048

REACTIONS (2)
  - EYE INFECTION [None]
  - EYE IRRITATION [None]
